APPROVED DRUG PRODUCT: ENFLURANE
Active Ingredient: ENFLURANE
Strength: 99.9%
Dosage Form/Route: LIQUID;INHALATION
Application: A070803 | Product #001
Applicant: ABBOTT LABORATORIES HOSP PRODUCTS DIV
Approved: Sep 8, 1987 | RLD: No | RS: No | Type: DISCN